FAERS Safety Report 19059693 (Version 1)
Quarter: 2021Q1

REPORT INFORMATION
  Report Type: Spontaneous
  Country: US (occurrence: US)
  Receive Date: 20210326
  Receipt Date: 20210326
  Transmission Date: 20210420
  Serious: No
  Sender: FDA-Public Use
  Company Number: US-SA-2021SA101595

PATIENT
  Age: 80 Year
  Sex: Female

DRUGS (1)
  1. FERRLECIT [Suspect]
     Active Substance: SODIUM FERRIC GLUCONATE COMPLEX
     Indication: BLOOD IRON DECREASED
     Route: 042
     Dates: start: 20210323, end: 20210323

REACTIONS (1)
  - Administration site extravasation [Unknown]

NARRATIVE: CASE EVENT DATE: 20210323
